FAERS Safety Report 4390206-2 (Version None)
Quarter: 2004Q3

REPORT INFORMATION
  Report Type: 
  Country: None (occurrence: None)
  Receive Date: 20040706
  Receipt Date: 20040617
  Transmission Date: 20050211
  Serious: Yes (Other)
  Sender: FDA-Public Use
  Company Number: IL-GLAXOSMITHKLINE-B0337852A

PATIENT
  Age: 47 Year
  Sex: Male
  Weight: 66 kg

DRUGS (2)
  1. ZYBAN [Suspect]
     Route: 048
  2. NO CONCURRENT MEDICATION [Concomitant]

REACTIONS (4)
  - ENERGY INCREASED [None]
  - EUPHORIC MOOD [None]
  - HYPOMANIA [None]
  - INSOMNIA [None]
